FAERS Safety Report 7290357-9 (Version None)
Quarter: 2011Q1

REPORT INFORMATION
  Report Type: 
  Country: None (occurrence: None)
  Receive Date: 20110131
  Receipt Date: 20110114
  Transmission Date: 20110831
  Serious: Yes (Hospitalization)
  Sender: FDA-Public Use
  Company Number: 004439

PATIENT
  Sex: Female
  Weight: 41.6 kg

DRUGS (8)
  1. AZATHIOPRINE [Concomitant]
  2. COUMADIN [Concomitant]
  3. AMBIEN [Concomitant]
  4. CALCIUM CARBONATE W/CHOLECALCIFEROL/SODIUM [Concomitant]
  5. CIMZIA [Suspect]
     Indication: CROHN'S DISEASE
     Dosage: 400 MG 1X/4 WEEKS, SUBCUTANEOUS
     Route: 058
     Dates: start: 20080601, end: 20101201
  6. BRENTACORT [Concomitant]
  7. ERTAPENEM [Concomitant]
  8. FLUCONAZOLE [Concomitant]

REACTIONS (4)
  - INTESTINAL STENOSIS [None]
  - PELVIC ABSCESS [None]
  - FISTULA [None]
  - APPENDICITIS PERFORATED [None]
